FAERS Safety Report 6956985-2 (Version None)
Quarter: 2010Q3

REPORT INFORMATION
  Report Type: 
  Country: None (occurrence: None)
  Receive Date: 20100827
  Receipt Date: 20100827
  Transmission Date: 20110219
  Serious: Yes (Other)
  Sender: FDA-Public Use
  Company Number: None

PATIENT
  Sex: Male

DRUGS (2)
  1. CIPROFLOXACIN [Suspect]
     Dosage: 400MG IV
     Route: 042
  2. MEROPENEM [Suspect]
     Dosage: 200 MG IV
     Route: 042

REACTIONS (3)
  - DEVICE OCCLUSION [None]
  - DRUG THERAPEUTIC INCOMPATIBILITY [None]
  - PRODUCT DEPOSIT [None]
